FAERS Safety Report 9061953 (Version 1)
Quarter: 2013Q1

REPORT INFORMATION
  Report Type: Spontaneous
  Country: CN (occurrence: None)
  Receive Date: 20130118
  Receipt Date: 20130118
  Transmission Date: 20140127
  Serious: Yes (Other)
  Sender: FDA-Public Use
  Company Number: VAL_01278_2013

PATIENT
  Age: 29 Year
  Sex: Female
  Weight: 45 kg

DRUGS (1)
  1. LOTENSIN [Suspect]
     Indication: HEART DISEASE CONGENITAL
     Route: 048
     Dates: start: 20100312, end: 20100315

REACTIONS (3)
  - Anaphylactic reaction [None]
  - Cough [None]
  - Insomnia [None]
